FAERS Safety Report 10360959 (Version 1)
Quarter: 2014Q3

REPORT INFORMATION
  Report Type: Spontaneous
  Country: US (occurrence: US)
  Receive Date: 20140804
  Receipt Date: 20140804
  Transmission Date: 20150326
  Serious: Yes (Other)
  Sender: FDA-Public Use
  Company Number: US-TEVA-498133USA

PATIENT
  Age: 73 Year
  Sex: Female

DRUGS (2)
  1. WARFARIN [Suspect]
     Active Substance: WARFARIN
     Indication: PRODUCT USED FOR UNKNOWN INDICATION
     Dosage: 12 MG DAILY EXCEPT 10MG ON MONDAY, WEDNESDAY AND FRIDAY
     Route: 065
     Dates: start: 20120601
  2. WARFARIN [Interacting]
     Active Substance: WARFARIN
     Dosage: 10 MG ON MONDAY, WEDNESDAY AND FRIDAY
     Route: 065
     Dates: start: 20120601

REACTIONS (2)
  - International normalised ratio increased [Recovered/Resolved]
  - Food interaction [Recovered/Resolved]

NARRATIVE: CASE EVENT DATE: 20120809
